FAERS Safety Report 11237567 (Version 2)
Quarter: 2015Q3

REPORT INFORMATION
  Report Type: Spontaneous
  Country: ES (occurrence: ES)
  Receive Date: 20150703
  Receipt Date: 20150805
  Transmission Date: 20151125
  Serious: Yes (Hospitalization, Other)
  Sender: FDA-Public Use
  Company Number: ES-ABBVIE-15K-144-1419012-00

PATIENT
  Age: 55 Year
  Sex: Male

DRUGS (2)
  1. METHOTREXATE [Concomitant]
     Active Substance: METHOTREXATE
     Indication: CROHN^S DISEASE
  2. HUMIRA [Suspect]
     Active Substance: ADALIMUMAB
     Indication: CROHN^S DISEASE
     Route: 058
     Dates: start: 20130113, end: 201506

REACTIONS (5)
  - Subileus [Recovered/Resolved]
  - Intestinal stenosis [Unknown]
  - Gastrointestinal dysplasia [Unknown]
  - Enterocutaneous fistula [Recovered/Resolved]
  - Small intestine adenocarcinoma [Unknown]

NARRATIVE: CASE EVENT DATE: 2015
